FAERS Safety Report 12618945 (Version 1)
Quarter: 2016Q3

REPORT INFORMATION
  Report Type: Spontaneous
  Country: VN (occurrence: VN)
  Receive Date: 20160803
  Receipt Date: 20160803
  Transmission Date: 20161109
  Serious: Yes (Hospitalization)
  Sender: FDA-Public Use
  Company Number: VN-ASTRAZENECA-2016SE81422

PATIENT
  Age: 24314 Day
  Sex: Female
  Weight: 42 kg

DRUGS (5)
  1. LIPITOR [Concomitant]
     Active Substance: ATORVASTATIN CALCIUM
     Dosage: 20.0MG UNKNOWN
  2. HYDROCONTISOL [Concomitant]
     Dosage: 10.0MG UNKNOWN
  3. INSULIN [Concomitant]
     Active Substance: INSULIN NOS
  4. FORXIGA [Suspect]
     Active Substance: DAPAGLIFLOZIN
     Dosage: 5.0MG UNKNOWN
     Route: 048
  5. COZAAR [Concomitant]
     Active Substance: LOSARTAN POTASSIUM
     Dosage: 550

REACTIONS (4)
  - Escherichia urinary tract infection [Unknown]
  - Altered state of consciousness [Unknown]
  - Decreased appetite [Unknown]
  - Sepsis [Unknown]

NARRATIVE: CASE EVENT DATE: 20160426
